FAERS Safety Report 7263022-1 (Version None)
Quarter: 2011Q1

REPORT INFORMATION
  Report Type: 
  Country: None (occurrence: None)
  Receive Date: 20110130
  Receipt Date: 20101004
  Transmission Date: 20110831
  Serious: No
  Sender: FDA-Public Use
  Company Number: US-ABBOTT-10P-163-0675427-00

PATIENT
  Age: 78 Year
  Sex: Female

DRUGS (10)
  1. HUMIRA [Suspect]
     Indication: PSORIASIS
     Route: 058
     Dates: start: 20100813
  2. VITAMIN D [Concomitant]
     Indication: PRODUCT USED FOR UNKNOWN INDICATION
  3. ESTER C [Concomitant]
     Indication: PRODUCT USED FOR UNKNOWN INDICATION
  4. LISINOPRIL [Concomitant]
     Indication: BLOOD PRESSURE
  5. COENZYME Q10 [Concomitant]
     Indication: PRODUCT USED FOR UNKNOWN INDICATION
  6. CENTRUM [Concomitant]
     Indication: VITAMIN SUPPLEMENTATION
  7. FOSAMAX [Concomitant]
     Indication: BONE DISORDER
  8. LIPITOR [Concomitant]
     Indication: BLOOD CHOLESTEROL
  9. VITAMIN B-12 [Concomitant]
     Indication: PRODUCT USED FOR UNKNOWN INDICATION
  10. INFLUENZA VACCINE [Concomitant]
     Indication: PRODUCT USED FOR UNKNOWN INDICATION
     Dates: start: 20100917

REACTIONS (5)
  - MUSCULAR WEAKNESS [None]
  - RASH [None]
  - FALL [None]
  - INFLUENZA LIKE ILLNESS [None]
  - CONTUSION [None]
